FAERS Safety Report 19515633 (Version 1)
Quarter: 2021Q3

REPORT INFORMATION
  Report Type: Spontaneous
  Country: HR (occurrence: HR)
  Receive Date: 20210709
  Receipt Date: 20210709
  Transmission Date: 20211014
  Serious: Yes (Other)
  Sender: FDA-Public Use
  Company Number: HR-ELI_LILLY_AND_COMPANY-HR202107001773

PATIENT
  Age: 63 Year
  Sex: Female

DRUGS (3)
  1. CISPLATIN. [Suspect]
     Active Substance: CISPLATIN
     Indication: LUNG ADENOCARCINOMA
     Dosage: UNK UNK, UNKNOWN
     Route: 065
     Dates: start: 202007, end: 202008
  2. KEYTRUDA [Suspect]
     Active Substance: PEMBROLIZUMAB
     Indication: LUNG ADENOCARCINOMA
     Dosage: UNK, UNKNOWN
     Route: 065
     Dates: start: 202007
  3. PEMETREXED. [Suspect]
     Active Substance: PEMETREXED
     Indication: LUNG ADENOCARCINOMA
     Dosage: UNK, UNKNOWN
     Route: 065

REACTIONS (4)
  - Joint swelling [Recovering/Resolving]
  - Hypothyroidism [Recovering/Resolving]
  - Periorbital oedema [Unknown]
  - Fatigue [Unknown]

NARRATIVE: CASE EVENT DATE: 202101
